FAERS Safety Report 11789664 (Version 1)
Quarter: 2015Q4

REPORT INFORMATION
  Report Type: Spontaneous
  Country: US (occurrence: US)
  Receive Date: 20151201
  Receipt Date: 20151201
  Transmission Date: 20160305
  Serious: Yes (Other)
  Sender: FDA-Public Use
  Company Number: US-GLAXOSMITHKLINE-US2015165087

PATIENT
  Age: 69 Year
  Sex: Female

DRUGS (10)
  1. METHOTREXATE [Suspect]
     Active Substance: METHOTREXATE
     Dosage: UNK
     Route: 048
     Dates: start: 201510
  2. MEPRON [Suspect]
     Active Substance: ATOVAQUONE
     Indication: PRODUCT USED FOR UNKNOWN INDICATION
     Dosage: 1500 MG, QD
     Route: 048
     Dates: start: 201504
  3. MEPRON [Suspect]
     Active Substance: ATOVAQUONE
     Dosage: UNK
     Route: 048
     Dates: start: 201510
  4. METHOTREXATE [Suspect]
     Active Substance: METHOTREXATE
     Indication: FISTULA
     Dosage: 5 DF, WE
     Route: 048
     Dates: start: 201504
  5. BYSTOLIC [Concomitant]
     Active Substance: NEBIVOLOL HYDROCHLORIDE
  6. NASCOBAL [Concomitant]
     Active Substance: CYANOCOBALAMIN
  7. AMITRIPTYLINE [Concomitant]
     Active Substance: AMITRIPTYLINE
  8. LOSARTAN. [Concomitant]
     Active Substance: LOSARTAN
  9. HUMIRA [Concomitant]
     Active Substance: ADALIMUMAB
  10. ALPRAZOLAM. [Concomitant]
     Active Substance: ALPRAZOLAM

REACTIONS (6)
  - Nausea [Not Recovered/Not Resolved]
  - Clostridium difficile infection [Recovered/Resolved]
  - Diarrhoea [Not Recovered/Not Resolved]
  - Abdominal pain upper [Recovered/Resolved]
  - Sinusitis [Unknown]
  - Malaise [Recovered/Resolved]

NARRATIVE: CASE EVENT DATE: 201505
